FAERS Safety Report 13964012 (Version 2)
Quarter: 2018Q1

REPORT INFORMATION
  Report Type: Spontaneous
  Country: JP (occurrence: JP)
  Receive Date: 20170913
  Receipt Date: 20180305
  Transmission Date: 20180508
  Serious: Yes (Hospitalization)
  Sender: FDA-Public Use
  Company Number: JP-ACTELION-A-CH2016-140665

PATIENT
  Age: 47 Year
  Sex: Female

DRUGS (26)
  1. ADCIRCA [Concomitant]
     Active Substance: TADALAFIL
     Indication: PRODUCT USED FOR UNKNOWN INDICATION
  2. LAC-B [Concomitant]
     Active Substance: BIFIDOBACTERIUM SPP.
  3. EPOPROSTENOL ACT [Suspect]
     Active Substance: EPOPROSTENOL
     Dosage: 11 NG/KG, PER MIN
     Route: 042
     Dates: start: 20160128
  4. TEPRENONE [Concomitant]
     Active Substance: TEPRENONE
  5. FERROUS SULFATE. [Concomitant]
     Active Substance: FERROUS SULFATE
  6. ALFACALCIDOL [Concomitant]
     Active Substance: ALFACALCIDOL
  7. MIYA-BM [Concomitant]
     Active Substance: CLOSTRIDIUM BUTYRICUM SPORES STRAIN M-55
  8. EPOPROSTENOL ACT [Suspect]
     Active Substance: EPOPROSTENOL
     Indication: PULMONARY ARTERIAL HYPERTENSION
     Dosage: 12.5 NG/KG, PER MIN
     Route: 042
     Dates: start: 20131108
  9. EPOPROSTENOL ACT [Suspect]
     Active Substance: EPOPROSTENOL
     Dosage: 10.5 NG/KG, PER MIN
     Route: 042
     Dates: start: 20140512
  10. BREDININ [Suspect]
     Active Substance: MIZORIBINE
     Indication: RHEUMATOID ARTHRITIS
     Dosage: 100 MG, QD
     Route: 048
     Dates: start: 20160408, end: 20160812
  11. TRANSAMIN [Concomitant]
     Active Substance: TRANEXAMIC ACID
  12. AZULFIDINE EN-TABS [Suspect]
     Active Substance: SULFASALAZINE
     Indication: RHEUMATOID ARTHRITIS
     Dosage: 100 MG, QD
     Route: 048
     Dates: start: 20160413, end: 20160812
  13. FLUITRAN [Suspect]
     Active Substance: TRICHLORMETHIAZIDE
     Indication: PRODUCT USED FOR UNKNOWN INDICATION
     Route: 065
  14. TRACLEER [Concomitant]
     Active Substance: BOSENTAN
     Indication: PRODUCT USED FOR UNKNOWN INDICATION
     Route: 048
  15. FERROUS CITRATE NA [Concomitant]
     Active Substance: SODIUM FERROUS CITRATE
  16. EPOPROSTENOL ACT [Suspect]
     Active Substance: EPOPROSTENOL
     Dosage: 9.4 NG/KG, PER MIN
     Route: 042
     Dates: start: 20131025
  17. EPOPROSTENOL ACT [Suspect]
     Active Substance: EPOPROSTENOL
     Dosage: 9.5 NG/KG, PER MIN
     Route: 042
     Dates: start: 20140204
  18. EPOPROSTENOL ACT [Suspect]
     Active Substance: EPOPROSTENOL
     Dosage: 11.3 NG/KG, PER MIN
     Route: 042
     Dates: start: 20150223
  19. WARFARIN [Concomitant]
     Active Substance: WARFARIN
  20. PREDNISOLONE. [Concomitant]
     Active Substance: PREDNISOLONE
  21. RIMATIL [Concomitant]
     Active Substance: BUCILLAMINE
  22. EPOPROSTENOL ACT [Suspect]
     Active Substance: EPOPROSTENOL
     Dosage: 10.5 NG/KG, PER MIN
     Route: 042
     Dates: start: 20150803
  23. OXYGEN. [Concomitant]
     Active Substance: OXYGEN
  24. EPOPROSTENOL ACT [Suspect]
     Active Substance: EPOPROSTENOL
     Dosage: 11.0 NG/KG, PER MIN
     Route: 042
     Dates: start: 20140811
  25. AZULFIDINE EN-TABS [Suspect]
     Active Substance: SULFASALAZINE
     Dosage: 2000 MG, QD
     Route: 048
     Dates: start: 20130813, end: 20131203
  26. NEXIUM [Concomitant]
     Active Substance: ESOMEPRAZOLE MAGNESIUM

REACTIONS (7)
  - Cough [Recovered/Resolved]
  - Hypozincaemia [Recovered/Resolved]
  - Oral candidiasis [Recovered/Resolved]
  - Diarrhoea [Recovered/Resolved]
  - Pseudomembranous colitis [Recovered/Resolved]
  - Paraesthesia [Recovered/Resolved]
  - Tongue coated [Recovered/Resolved]

NARRATIVE: CASE EVENT DATE: 20140107
